FAERS Safety Report 8069052-4 (Version None)
Quarter: 2012Q1

REPORT INFORMATION
  Report Type: 
  Country: None (occurrence: None)
  Receive Date: 20120118
  Receipt Date: 20120109
  Transmission Date: 20120608
  Serious: Yes (Death)
  Sender: FDA-Public Use
  Company Number: JPI-P-014773

PATIENT
  Age: 72 Year
  Sex: Female

DRUGS (3)
  1. XYREM [Suspect]
     Indication: PRODUCT USED FOR UNKNOWN INDICATION
     Dosage: 4.5 GM (2.25 GM, 2 IN 1 D),ORAL; 6 GM (3 GM, 2 IN 1 D), ORAL; 7.5 GM (3.75 GM, 2 IN 1), ORAL
     Route: 048
     Dates: start: 20021205, end: 20030201
  2. XYREM [Suspect]
     Indication: PRODUCT USED FOR UNKNOWN INDICATION
     Dosage: 4.5 GM (2.25 GM, 2 IN 1 D),ORAL; 6 GM (3 GM, 2 IN 1 D), ORAL; 7.5 GM (3.75 GM, 2 IN 1), ORAL
     Route: 048
     Dates: start: 20030221, end: 20031201
  3. XYREM [Suspect]
     Indication: PRODUCT USED FOR UNKNOWN INDICATION
     Dosage: 4.5 GM (2.25 GM, 2 IN 1 D),ORAL; 6 GM (3 GM, 2 IN 1 D), ORAL; 7.5 GM (3.75 GM, 2 IN 1), ORAL
     Route: 048
     Dates: start: 20031202, end: 20040122

REACTIONS (2)
  - ENDOCARDITIS [None]
  - ACUTE RESPIRATORY DISTRESS SYNDROME [None]
